FAERS Safety Report 18529508 (Version 2)
Quarter: 2020Q4

REPORT INFORMATION
  Report Type: Spontaneous
  Country: US (occurrence: US)
  Receive Date: 20201120
  Receipt Date: 20201215
  Transmission Date: 20210114
  Serious: Yes (Other)
  Sender: FDA-Public Use
  Company Number: US-TEVA-2020-US-1848982

PATIENT
  Sex: Female

DRUGS (3)
  1. LAMOTRIGINE. [Suspect]
     Active Substance: LAMOTRIGINE
     Indication: MANIA
     Route: 065
  2. LETROZOLE. [Suspect]
     Active Substance: LETROZOLE
     Indication: OVULATION INDUCTION
     Route: 065
  3. LURASIDONE [Concomitant]
     Active Substance: LURASIDONE
     Indication: MANIA
     Route: 065

REACTIONS (2)
  - Mania [Unknown]
  - Stevens-Johnson syndrome [Unknown]
